FAERS Safety Report 16804084 (Version 9)
Quarter: 2020Q1

REPORT INFORMATION
  Report Type: Report from Study
  Country: US (occurrence: US)
  Receive Date: 20190913
  Receipt Date: 20200310
  Transmission Date: 20200409
  Serious: Yes (Other)
  Sender: FDA-Public Use
  Company Number: PHEH2019US037543

PATIENT
  Age: 28 Year
  Sex: Female

DRUGS (3)
  1. COSENTYX [Suspect]
     Active Substance: SECUKINUMAB
     Indication: PSORIASIS
     Dosage: UNK, QMO
     Route: 065
     Dates: start: 20190703
  2. COSENTYX [Suspect]
     Active Substance: SECUKINUMAB
     Dosage: 300 MG
     Route: 065
     Dates: end: 20191125
  3. CLEAR EYES COMPLETE 7 SYMPTOM RELIEF [Suspect]
     Active Substance: HYPROMELLOSES\NAPHAZOLINE HYDROCHLORIDE\POLYSORBATE 80\ZINC SULFATE
     Indication: EYE INFECTION STAPHYLOCOCCAL
     Route: 065

REACTIONS (25)
  - Menstrual disorder [Unknown]
  - Incorrect dose administered [Unknown]
  - Vision blurred [Unknown]
  - Bloody discharge [Unknown]
  - Arthralgia [Unknown]
  - Erythema [Unknown]
  - Influenza like illness [Unknown]
  - Otorrhoea [Unknown]
  - Eye swelling [Unknown]
  - Alopecia [Unknown]
  - Device issue [Unknown]
  - Scoliosis [Unknown]
  - Accidental exposure to product [Unknown]
  - Ear infection staphylococcal [Unknown]
  - Ear disorder [Unknown]
  - Eye infection staphylococcal [Unknown]
  - Eye pruritus [Unknown]
  - Scab [Unknown]
  - Blepharitis [Unknown]
  - Ocular hyperaemia [Unknown]
  - Psoriasis [Unknown]
  - Blister [Unknown]
  - Eye discharge [Unknown]
  - Eye irritation [Unknown]
  - Therapeutic product effect incomplete [Unknown]

NARRATIVE: CASE EVENT DATE: 20190902
